FAERS Safety Report 8875539 (Version 1)
Quarter: 2012Q4

REPORT INFORMATION
  Report Type: 
  Country: CN (occurrence: CN)
  Receive Date: 20121030
  Receipt Date: 20121030
  Transmission Date: 20130627
  Serious: Yes (Other)
  Sender: FDA-Public Use
  Company Number: CN-JNJFOC-20121013523

PATIENT
  Age: 28 Month
  Sex: Female
  Weight: 15 kg

DRUGS (2)
  1. CHILDREN^S MOTRIN [Suspect]
     Route: 048
  2. CHILDREN^S MOTRIN [Suspect]
     Indication: ACCIDENTAL EXPOSURE TO PRODUCT
     Dosage: 15 ml bottle: 0.6 g, 15 ml
     Route: 048
     Dates: start: 20121020, end: 20121020

REACTIONS (2)
  - Accidental exposure to product by child [Recovered/Resolved]
  - Overdose [Recovered/Resolved]
